FAERS Safety Report 16540522 (Version 1)
Quarter: 2019Q3

REPORT INFORMATION
  Report Type: Spontaneous
  Country: US (occurrence: US)
  Receive Date: 20190707
  Receipt Date: 20190707
  Transmission Date: 20191004
  Serious: Yes (Disabling)
  Sender: FDA-Public Use
  Company Number: None

PATIENT
  Age: 65 Year
  Sex: Male
  Weight: 59.4 kg

DRUGS (8)
  1. HYDRALAZINE HCL [Concomitant]
     Active Substance: HYDRALAZINE HYDROCHLORIDE
  2. TRIAMTERENE/HYDROCHLOROTHIAZIDE [Suspect]
     Active Substance: HYDROCHLOROTHIAZIDE\TRIAMTERENE
     Indication: BLOOD PRESSURE MEASUREMENT
     Dates: start: 20190222, end: 20190704
  3. CARVEDILOL. [Suspect]
     Active Substance: CARVEDILOL
  4. CARVEDILOL. [Concomitant]
     Active Substance: CARVEDILOL
  5. OMEPRAZOLE. [Concomitant]
     Active Substance: OMEPRAZOLE
  6. NIFEDIPINE. [Concomitant]
     Active Substance: NIFEDIPINE
  7. ASPIRIN. [Concomitant]
     Active Substance: ASPIRIN
  8. TRIAMTERENE/HYDROC [Concomitant]

REACTIONS (3)
  - Peripheral coldness [None]
  - Hypoaesthesia [None]
  - Poor peripheral circulation [None]

NARRATIVE: CASE EVENT DATE: 20190218
